FAERS Safety Report 5905034-3 (Version None)
Quarter: 2008Q3

REPORT INFORMATION
  Report Type: 
  Country: None (occurrence: None)
  Receive Date: 20080909
  Receipt Date: 20080417
  Transmission Date: 20090109
  Serious: Yes (Death)
  Sender: FDA-Public Use
  Company Number: 163-20785-08041315

PATIENT
  Age: 65 Year
  Sex: Female

DRUGS (4)
  1. THALOMID [Suspect]
     Indication: MULTIPLE MYELOMA
     Dosage: 200 MG, 1 IN 1 D, ORAL : 100-200MG, DAILY, ORAL : 300-200MG, DAILY, ORAL
     Route: 048
     Dates: start: 20030530, end: 20030901
  2. THALOMID [Suspect]
     Indication: MULTIPLE MYELOMA
     Dosage: 200 MG, 1 IN 1 D, ORAL : 100-200MG, DAILY, ORAL : 300-200MG, DAILY, ORAL
     Route: 048
     Dates: start: 20040126, end: 20070101
  3. THALOMID [Suspect]
     Indication: MULTIPLE MYELOMA
     Dosage: 200 MG, 1 IN 1 D, ORAL : 100-200MG, DAILY, ORAL : 300-200MG, DAILY, ORAL
     Route: 048
     Dates: start: 20070220
  4. THALOMID [Suspect]

REACTIONS (1)
  - DEATH [None]
